FAERS Safety Report 4565152-1 (Version None)
Quarter: 2005Q1

REPORT INFORMATION
  Report Type: 
  Country: None (occurrence: None)
  Receive Date: 20050127
  Receipt Date: 20050127
  Transmission Date: 20050727
  Serious: Yes (Hospitalization)
  Sender: FDA-Public Use
  Company Number: None

PATIENT
  Age: 22 Year
  Sex: Male
  Weight: 99.3377 kg

DRUGS (1)
  1. HALOPERIDOL [Suspect]
     Dosage: 5M G IM PRN

REACTIONS (8)
  - AGGRESSION [None]
  - CATATONIA [None]
  - DROOLING [None]
  - DYSKINESIA [None]
  - JOINT STIFFNESS [None]
  - SPEECH DISORDER [None]
  - TONGUE DISCOLOURATION [None]
  - TONGUE DISORDER [None]
